FAERS Safety Report 8558130-9 (Version None)
Quarter: 2012Q3

REPORT INFORMATION
  Report Type: 
  Country: None (occurrence: None)
  Receive Date: 20120801
  Receipt Date: 20120720
  Transmission Date: 20120928
  Serious: Yes (Hospitalization, Disabling, Other)
  Sender: FDA-Public Use
  Company Number: US-009507513-1205USA02853

PATIENT

DRUGS (2)
  1. FLUTICASONE PROPIONATE [Concomitant]
     Indication: HYPERSENSITIVITY
     Dosage: 40 UNK, UNK
  2. FOSAMAX [Suspect]
     Indication: OSTEOPOROSIS
     Dosage: UNK
     Route: 048
     Dates: start: 19950101, end: 20060101

REACTIONS (17)
  - STRESS FRACTURE [None]
  - LOW TURNOVER OSTEOPATHY [None]
  - DEPRESSION [None]
  - ANXIETY [None]
  - EXCORIATION [None]
  - HYPERLIPIDAEMIA [None]
  - OSTEOPOROSIS [None]
  - FEMUR FRACTURE [None]
  - CATARACT [None]
  - HYPERTENSION [None]
  - SLEEP APNOEA SYNDROME [None]
  - GASTROOESOPHAGEAL REFLUX DISEASE [None]
  - BREAST CANCER [None]
  - GLAUCOMA [None]
  - VITAMIN D DEFICIENCY [None]
  - HIATUS HERNIA [None]
  - FALL [None]
